FAERS Safety Report 8499421-X (Version None)
Quarter: 2012Q3

REPORT INFORMATION
  Report Type: 
  Country: None (occurrence: None)
  Receive Date: 20120710
  Receipt Date: 20120703
  Transmission Date: 20120928
  Serious: Yes (Hospitalization)
  Sender: FDA-Public Use
  Company Number: DE-UCBSA-031372

PATIENT
  Sex: Male
  Weight: 58 kg

DRUGS (20)
  1. PREDNISOLONE [Concomitant]
  2. GLIMEPIRIDE [Concomitant]
     Indication: DIABETES MELLITUS
     Dosage: DOSAGE FREQUENCY:1
  3. OMEPRAZOLE [Concomitant]
     Indication: GASTRITIS EROSIVE
     Dosage: DOSE FREQUENCY:1
  4. ALENDRONATE SODIUM [Concomitant]
     Indication: OSTEOPOROSIS
  5. ENALAPRIL MALEATE [Concomitant]
     Indication: HYPERTENSION
  6. CIMZIA [Suspect]
     Route: 058
     Dates: start: 20110430
  7. PREDNISOLONE [Concomitant]
     Indication: RHEUMATOID ARTHRITIS
     Dosage: FREQUENCY:1
  8. CALCIVIT D CHEWABLE TABLET [Concomitant]
     Indication: OSTEOPOROSIS PROPHYLAXIS
     Dosage: FREQUENCY:2
  9. METFORMIN HCL [Concomitant]
     Indication: DIABETES MELLITUS
     Dosage: DOSE FREQUENCY:2
  10. OXYCODONE HYDROCHLORIDE [Concomitant]
     Dosage: 5 (UNITS UNSPECIFIED)  DOSE FREQUENCY:2
     Dates: start: 20100625
  11. FOLIC ACID [Concomitant]
     Indication: VITAMIN B1 DEFICIENCY
  12. PREDNISOLONE [Concomitant]
     Dosage: DOSE INCREASED
  13. SINGULAIR [Concomitant]
     Indication: CHRONIC OBSTRUCTIVE PULMONARY DISEASE
     Dosage: DOSE FREQUENCY:1
  14. NOVALGIN [Concomitant]
     Indication: PAIN
     Dosage: DOSE FREQUENCY:2, DOSE-500 MG
     Dates: start: 20100630, end: 20110224
  15. CIMZIA [Suspect]
     Indication: RHEUMATOID ARTHRITIS
     Dosage: NO. OF DOSES RECEIVED:3X
     Route: 058
     Dates: start: 20100210, end: 20100309
  16. CIMZIA [Suspect]
     Dosage: NO. OF DOSES RECEIVED:12X
     Route: 058
     Dates: start: 20100323, end: 20110330
  17. INSULIN PROTAPHANE [Concomitant]
     Indication: DIABETES MELLITUS
     Dosage: 18-0-0-28 IU
  18. FERROUS SULFATE TAB [Concomitant]
     Indication: IRON DEFICIENCY
     Dosage: DOSE FREQUENCY:2
  19. LINOLA [Concomitant]
     Indication: PRURITUS
     Dates: start: 20101201, end: 20110609
  20. METHOTREXATE [Concomitant]
     Dates: start: 20090223, end: 20110304

REACTIONS (1)
  - PNEUMONIA [None]
